FAERS Safety Report 6818305-3 (Version None)
Quarter: 2010Q3

REPORT INFORMATION
  Report Type: 
  Country: None (occurrence: None)
  Receive Date: 20100706
  Receipt Date: 20071022
  Transmission Date: 20110219
  Serious: No
  Sender: FDA-Public Use
  Company Number: US-PFIZER INC-2007089172

PATIENT
  Age: 20 Year
  Sex: Female

DRUGS (1)
  1. ZITHROMAX (SINGLE DOSE) [Suspect]
     Dates: start: 20071021, end: 20071021

REACTIONS (2)
  - ABDOMINAL PAIN [None]
  - NAUSEA [None]
